FAERS Safety Report 5719413-0 (Version None)
Quarter: 2008Q2

REPORT INFORMATION
  Report Type: 
  Country: None (occurrence: None)
  Receive Date: 20080428
  Receipt Date: 20080421
  Transmission Date: 20081010
  Serious: Yes (Hospitalization, Other)
  Sender: FDA-Public Use
  Company Number: PHHY2008CA06410

PATIENT
  Sex: Female

DRUGS (2)
  1. DIOVAN [Suspect]
  2. TENORMIN [Suspect]

REACTIONS (3)
  - APPENDICITIS [None]
  - INTESTINAL OBSTRUCTION [None]
  - PERITONITIS [None]
